FAERS Safety Report 9914883 (Version 1)
Quarter: 2014Q1

REPORT INFORMATION
  Report Type: Report from Study
  Country: US (occurrence: US)
  Receive Date: 20140220
  Receipt Date: 20140220
  Transmission Date: 20141002
  Serious: Yes (Hospitalization)
  Sender: FDA-Public Use
  Company Number: PHEH2014US003372

PATIENT
  Sex: Female

DRUGS (2)
  1. DIOVAN [Suspect]
     Dosage: UNK 320 MG, UNK
     Route: 048
  2. DIOVAN [Suspect]
     Dosage: 0.5 DF (320 MG), UNK
     Route: 048

REACTIONS (2)
  - Malaise [Unknown]
  - Wrong technique in drug usage process [Unknown]
